FAERS Safety Report 25259318 (Version 1)
Quarter: 2025Q2

REPORT INFORMATION
  Report Type: Spontaneous
  Country: US (occurrence: None)
  Receive Date: 20250430
  Receipt Date: 20250430
  Transmission Date: 20250716
  Serious: No
  Sender: FDA-CTU
  Company Number: None

PATIENT
  Age: 72 Year
  Sex: Female
  Weight: 70.31 kg

DRUGS (2)
  1. LEVULAN KERASTICK [Suspect]
     Active Substance: AMINOLEVULINIC ACID HYDROCHLORIDE
     Dates: start: 20250404, end: 20250407
  2. LATANOPROST [Concomitant]
     Active Substance: LATANOPROST

REACTIONS (2)
  - Epistaxis [None]
  - Nasal congestion [None]

NARRATIVE: CASE EVENT DATE: 20250408
